FAERS Safety Report 4704170-7 (Version None)
Quarter: 2005Q2

REPORT INFORMATION
  Report Type: 
  Country: None (occurrence: None)
  Receive Date: 20050629
  Receipt Date: 20050614
  Transmission Date: 20051028
  Serious: Yes (Hospitalization)
  Sender: FDA-Public Use
  Company Number: 2004BI001565

PATIENT
  Age: 50 Year
  Sex: Female
  Weight: 104.3273 kg

DRUGS (2)
  1. AVONEX [Suspect]
     Indication: MULTIPLE SCLEROSIS
     Dosage: 30 UG; QW; IM
     Route: 030
     Dates: start: 20040415, end: 20041102
  2. BLOOD PRESSURE PILLS (NOS) [Concomitant]

REACTIONS (7)
  - GASTRIC BYPASS [None]
  - INTESTINAL PERFORATION [None]
  - OBESITY [None]
  - OPEN WOUND [None]
  - PERITONITIS [None]
  - POST PROCEDURAL COMPLICATION [None]
  - WOUND INFECTION STAPHYLOCOCCAL [None]
